FAERS Safety Report 7233007-X (Version None)
Quarter: 2011Q1

REPORT INFORMATION
  Report Type: 
  Country: None (occurrence: None)
  Receive Date: 20110119
  Receipt Date: 20110117
  Transmission Date: 20110831
  Serious: Yes (Other)
  Sender: FDA-Public Use
  Company Number: US-PFIZER INC-2011011051

PATIENT
  Sex: Female
  Weight: 72.562 kg

DRUGS (4)
  1. NORCO [Concomitant]
     Indication: PAIN
     Dosage: 15/1000, 8X/DAY
     Route: 048
  2. CIPROFLOXACIN [Concomitant]
     Indication: CYSTITIS
     Dosage: 250 MG, 1X/DAY
     Route: 048
  3. FUROSEMIDE [Concomitant]
     Indication: DIURETIC THERAPY
     Dosage: 20 MG, 3X/DAY
     Route: 048
  4. LIPITOR [Suspect]
     Indication: BLOOD CHOLESTEROL INCREASED
     Dosage: 10 MG, 1X/DAY
     Route: 048

REACTIONS (1)
  - RENAL FAILURE [None]
